FAERS Safety Report 10483585 (Version 1)
Quarter: 2014Q3

REPORT INFORMATION
  Report Type: Spontaneous
  Country: SI (occurrence: None)
  Receive Date: 20140926
  Receipt Date: 20140926
  Transmission Date: 20150326
  Serious: Yes (Other)
  Sender: FDA-Public Use
  Company Number: 2014HINLIT0819

PATIENT
  Age: 86 Year
  Sex: Male

DRUGS (7)
  1. HYDROXYUREA. [Concomitant]
     Active Substance: HYDROXYUREA
  2. PANTOPRAZOLE [Concomitant]
     Active Substance: PANTOPRAZOLE SODIUM
  3. DIGOXIN. [Concomitant]
     Active Substance: DIGOXIN
  4. ESCITALOPRAM [Suspect]
     Active Substance: ESCITALOPRAM OXALATE
     Indication: PRODUCT USED FOR UNKNOWN INDICATION
  5. CLOMETHIAZOLE [Concomitant]
     Active Substance: CLOMETHIAZOLE
  6. CARVEDILOL. [Concomitant]
     Active Substance: CARVEDILOL
  7. ACETYLSALICILIC ACID [Concomitant]

REACTIONS (15)
  - Insomnia [None]
  - Fear [None]
  - Hallucination, visual [None]
  - Disorientation [None]
  - Acute myocardial infarction [None]
  - Cardiac failure [None]
  - Thrombocytosis [None]
  - Delirium [None]
  - Hallucination, olfactory [None]
  - Atrial fibrillation [None]
  - Gastrooesophageal reflux disease [None]
  - Anxiety [None]
  - Myeloproliferative disorder [None]
  - Restlessness [None]
  - Cognitive disorder [None]
